FAERS Safety Report 13265982 (Version 2)
Quarter: 2017Q2

REPORT INFORMATION
  Report Type: Report from Study
  Country: JP (occurrence: JP)
  Receive Date: 20170223
  Receipt Date: 20170405
  Transmission Date: 20170830
  Serious: Yes (Death, Life-Threatening, Hospitalization)
  Sender: FDA-Public Use
  Company Number: JP-EISAI MEDICAL RESEARCH-EC-2017-025106

PATIENT
  Age: 84 Year
  Sex: Female
  Weight: 38 kg

DRUGS (11)
  1. AVAPRO [Concomitant]
     Active Substance: IRBESARTAN
  2. CALFINA [Concomitant]
     Active Substance: ALFACALCIDOL
  3. KERATINAMIN [Concomitant]
     Active Substance: UREA
  4. UREPEARL [Concomitant]
     Active Substance: UREA
  5. RINDERON VG [Concomitant]
     Active Substance: BETAMETHASONE VALERATE\GENTAMICIN SULFATE
  6. LENVIMA [Suspect]
     Active Substance: LENVATINIB
     Indication: PAPILLARY THYROID CANCER
     Route: 048
     Dates: start: 20150911, end: 20151229
  7. LENVIMA [Suspect]
     Active Substance: LENVATINIB
     Route: 048
     Dates: start: 20151230, end: 20160713
  8. PYDOXAL [Concomitant]
     Active Substance: PYRIDOXAL
  9. AMLODIPINE [Concomitant]
     Active Substance: AMLODIPINE BESYLATE
  10. LOXONIN [Concomitant]
     Active Substance: LOXOPROFEN SODIUM
  11. LEVOTHYROXINE. [Concomitant]
     Active Substance: LEVOTHYROXINE

REACTIONS (8)
  - Pyrexia [Not Recovered/Not Resolved]
  - Pleural effusion [Recovered/Resolved]
  - Malnutrition [Not Recovered/Not Resolved]
  - Dysphagia [Not Recovered/Not Resolved]
  - Respiratory failure [Not Recovered/Not Resolved]
  - Malignant neoplasm progression [Fatal]
  - Dehydration [Not Recovered/Not Resolved]
  - Decreased appetite [Not Recovered/Not Resolved]

NARRATIVE: CASE EVENT DATE: 20151229
